FAERS Safety Report 7883486-X (Version None)
Quarter: 2011Q4

REPORT INFORMATION
  Report Type: 
  Country: None (occurrence: None)
  Receive Date: 20111102
  Receipt Date: 20101020
  Transmission Date: 20120403
  Serious: Yes (Other)
  Sender: FDA-Public Use
  Company Number: US-GLAXOSMITHKLINE-A0888983A

PATIENT
  Age: 60 Year
  Sex: Female

DRUGS (3)
  1. BETA BLOCKER [Suspect]
     Indication: ATRIAL FIBRILLATION
     Route: 065
     Dates: start: 20100101, end: 20100101
  2. RYTHMOL SR [Suspect]
     Indication: ATRIAL FIBRILLATION
     Route: 048
  3. MULTAQ [Suspect]
     Indication: ATRIAL FIBRILLATION
     Route: 065
     Dates: start: 20100101, end: 20100101

REACTIONS (2)
  - ATRIAL FIBRILLATION [None]
  - TREMOR [None]
